FAERS Safety Report 15053186 (Version 2)
Quarter: 2018Q3

REPORT INFORMATION
  Report Type: Report from Study
  Country: US (occurrence: US)
  Receive Date: 20180622
  Receipt Date: 20180713
  Transmission Date: 20181010
  Serious: Yes (Death)
  Sender: FDA-Public Use
  Company Number: US-ACTELION-A-NJ2018-173983

PATIENT
  Age: 73 Year
  Sex: Female

DRUGS (12)
  1. BUPROPION. [Concomitant]
     Active Substance: BUPROPION
  2. PAROXETINE. [Concomitant]
     Active Substance: PAROXETINE
     Dosage: 20 MG, QD
  3. SILDENAFIL. [Concomitant]
     Active Substance: SILDENAFIL
     Dosage: 20 MG, TID
     Dates: start: 2015
  4. OPSUMIT [Suspect]
     Active Substance: MACITENTAN
     Indication: PULMONARY HYPERTENSION
     Dosage: 10 MG, QD
     Route: 048
     Dates: start: 20170601, end: 20180601
  5. GABAPENTIN. [Concomitant]
     Active Substance: GABAPENTIN
  6. TORSEMIDE. [Concomitant]
     Active Substance: TORSEMIDE
  7. SPIRONOLACTONE. [Concomitant]
     Active Substance: SPIRONOLACTONE
     Dosage: 25 MG, QD
  8. GENERLAC [Concomitant]
     Active Substance: LACTULOSE
  9. COUMADIN [Concomitant]
     Active Substance: WARFARIN SODIUM
  10. SILDENAFIL. [Concomitant]
     Active Substance: SILDENAFIL
     Dosage: 20 MG, TID
     Dates: start: 20180203, end: 20180601
  11. OXYBUTYNIN. [Concomitant]
     Active Substance: OXYBUTYNIN CHLORIDE
  12. DICYCLOMINE [Concomitant]
     Active Substance: DICYCLOMINE HYDROCHLORIDE

REACTIONS (1)
  - Pelvic pain [Fatal]

NARRATIVE: CASE EVENT DATE: 20180601
